FAERS Safety Report 5150536-3 (Version None)
Quarter: 2006Q4

REPORT INFORMATION
  Report Type: 
  Country: None (occurrence: None)
  Receive Date: 20061110
  Receipt Date: 20061110
  Transmission Date: 20070319
  Serious: Yes (Disabling)
  Sender: FDA-Public Use
  Company Number: None

PATIENT
  Age: 48 Year
  Sex: Female
  Weight: 110.2241 kg

DRUGS (1)
  1. EQUATE ARTHRITIS PAIN     650 MG    PERRIGO, ALLEGAN, MI [Suspect]
     Indication: PAIN MANAGEMENT
     Dosage: 2 CAPLETS  EVERY 8 HOURS  PO
     Route: 048

REACTIONS (5)
  - APPENDIX DISORDER [None]
  - COMPUTERISED TOMOGRAM ABNORMAL [None]
  - DIVERTICULUM [None]
  - PHARMACEUTICAL PRODUCT COMPLAINT [None]
  - POOR QUALITY DRUG ADMINISTERED [None]
